FAERS Safety Report 21319998 (Version 2)
Quarter: 2022Q3

REPORT INFORMATION
  Report Type: Spontaneous
  Country: US (occurrence: US)
  Receive Date: 20220911
  Receipt Date: 20220923
  Transmission Date: 20221026
  Serious: No
  Sender: FDA-Public Use
  Company Number: US-SANOFI-01261318

PATIENT
  Sex: Male
  Weight: 99.773 kg

DRUGS (1)
  1. SELSUN BLUE MEDICATED [Suspect]
     Active Substance: SELENIUM SULFIDE
     Indication: Pruritus
     Dosage: UNK
     Route: 061

REACTIONS (3)
  - Pruritus [Recovered/Resolved]
  - Skin reaction [Recovered/Resolved]
  - Drug ineffective [Unknown]
